FAERS Safety Report 25440671 (Version 1)
Quarter: 2025Q2

REPORT INFORMATION
  Report Type: Spontaneous
  Country: PT (occurrence: PT)
  Receive Date: 20250616
  Receipt Date: 20250616
  Transmission Date: 20250716
  Serious: Yes (Other)
  Sender: PFIZER
  Company Number: PT-PFIZER INC-PV202500071160

PATIENT
  Age: 50 Year
  Sex: Female

DRUGS (1)
  1. CABERGOLINE [Suspect]
     Active Substance: CABERGOLINE

REACTIONS (1)
  - Tricuspid valve incompetence [Recovered/Resolved]
